FAERS Safety Report 5451246-5 (Version None)
Quarter: 2007Q3

REPORT INFORMATION
  Report Type: 
  Country: None (occurrence: None)
  Receive Date: 20070911
  Receipt Date: 20070911
  Transmission Date: 20080115
  Serious: Yes (Hospitalization)
  Sender: FDA-Public Use
  Company Number: None

PATIENT
  Sex: Male
  Weight: 73.4827 kg

DRUGS (1)
  1. BACTRIM [Suspect]
     Indication: WOUND INFECTION STAPHYLOCOCCAL
     Dosage: 2 TABLETS DAILY PO
     Route: 048
     Dates: start: 20070822, end: 20070903

REACTIONS (5)
  - BURNING SENSATION [None]
  - INFLUENZA LIKE ILLNESS [None]
  - PARAESTHESIA [None]
  - PHARYNGOLARYNGEAL PAIN [None]
  - STEVENS-JOHNSON SYNDROME [None]
